FAERS Safety Report 15490910 (Version 2)
Quarter: 2019Q2

REPORT INFORMATION
  Report Type: Spontaneous
  Country: FR (occurrence: FR)
  Receive Date: 20181012
  Receipt Date: 20190430
  Transmission Date: 20190711
  Serious: Yes (Hospitalization)
  Sender: FDA-Public Use
  Company Number: FR-AUROBINDO-AUR-APL-2018-049008

PATIENT

DRUGS (4)
  1. BISOCE [Suspect]
     Active Substance: BISOPROLOL
     Indication: PRODUCT USED FOR UNKNOWN INDICATION
     Dosage: 2.5 MILLIGRAM, DAILY
     Route: 048
     Dates: start: 20180612, end: 20180802
  2. LANSOPRAZOLE MYLAN [Suspect]
     Active Substance: LANSOPRAZOLE
     Indication: PRODUCT USED FOR UNKNOWN INDICATION
     Dosage: 30 MILLIGRAM, DAILY
     Route: 048
     Dates: start: 20180611, end: 20180802
  3. AMLODIPINE [Suspect]
     Active Substance: AMLODIPINE BESYLATE
     Indication: PRODUCT USED FOR UNKNOWN INDICATION
     Dosage: 5 MILLIGRAM, DAILY
     Route: 048
     Dates: start: 20180621, end: 20180802
  4. CALCIPARINE [Suspect]
     Active Substance: HEPARIN CALCIUM
     Indication: PRODUCT USED FOR UNKNOWN INDICATION
     Dosage: 10000 INTERNATIONAL UNIT, DAILY
     Route: 058
     Dates: start: 20180627, end: 20180802

REACTIONS (1)
  - Eosinophilia [Recovering/Resolving]

NARRATIVE: CASE EVENT DATE: 20180703
